FAERS Safety Report 8590195-0 (Version None)
Quarter: 2012Q3

REPORT INFORMATION
  Report Type: 
  Country: None (occurrence: None)
  Receive Date: 20120813
  Receipt Date: 20120806
  Transmission Date: 20120928
  Serious: Yes (Hospitalization)
  Sender: FDA-Public Use
  Company Number: IL-BAYER-2012-069375

PATIENT
  Age: 38 Year
  Sex: Female

DRUGS (2)
  1. BETAFERON [Suspect]
     Indication: MULTIPLE SCLEROSIS
     Dosage: 0.5 ML, QOD
     Dates: start: 20120619, end: 20120101
  2. BETAFERON [Suspect]
     Dosage: 6 MIU, QOD
     Dates: start: 20120101

REACTIONS (5)
  - LIGAMENT SPRAIN [None]
  - LOSS OF CONSCIOUSNESS [None]
  - CONVULSION [None]
  - HEADACHE [None]
  - FALL [None]
